FAERS Safety Report 4589785-1 (Version None)
Quarter: 2005Q1

REPORT INFORMATION
  Report Type: 
  Country: None (occurrence: None)
  Receive Date: 20050223
  Receipt Date: 20050217
  Transmission Date: 20050727
  Serious: Yes (Other)
  Sender: FDA-Public Use
  Company Number: US-GLAXOSMITHKLINE-A0546011A

PATIENT
  Age: 47 Year
  Sex: Male
  Weight: 100.9 kg

DRUGS (6)
  1. ROSIGLITAZONE [Suspect]
     Dosage: 8MG PER DAY
     Route: 048
     Dates: start: 20020405
  2. METFORMIN [Suspect]
     Dosage: 2000MG PER DAY
     Route: 048
     Dates: start: 20020405
  3. GLARGINE [Suspect]
     Dosage: 110UNIT PER DAY
     Dates: start: 20021202
  4. INSULIN ASPART [Suspect]
     Dosage: 50UNIT PER DAY
     Dates: start: 20030313
  5. ASPIRIN [Concomitant]
  6. FOSINOPRIL [Concomitant]

REACTIONS (3)
  - CONVULSION [None]
  - FALL [None]
  - HYPOGLYCAEMIA [None]
